FAERS Safety Report 12252717 (Version 1)
Quarter: 2016Q2

REPORT INFORMATION
  Report Type: Spontaneous
  Country: US (occurrence: US)
  Receive Date: 20160411
  Receipt Date: 20160411
  Transmission Date: 20160815
  Serious: No
  Sender: FDA-Public Use
  Company Number: US-TEVA-631833USA

PATIENT
  Age: 69 Year
  Sex: Female

DRUGS (1)
  1. TOBRAMYCIN. [Suspect]
     Active Substance: TOBRAMYCIN
     Indication: RESPIRATORY DISORDER
     Dosage: 300 MG/5 ML
     Route: 055
     Dates: start: 20140408

REACTIONS (2)
  - Laryngitis [Unknown]
  - Tinnitus [Unknown]

NARRATIVE: CASE EVENT DATE: 201601
